FAERS Safety Report 25582712 (Version 1)
Quarter: 2025Q3

REPORT INFORMATION
  Report Type: Spontaneous
  Country: US (occurrence: US)
  Receive Date: 20250720
  Receipt Date: 20250720
  Transmission Date: 20251020
  Serious: No
  Sender: SANOFI AVENTIS
  Company Number: US-SA-2025SA201672

PATIENT
  Sex: Female

DRUGS (16)
  1. DUPIXENT [Suspect]
     Active Substance: DUPILUMAB
     Indication: Type 2 diabetes mellitus
     Dosage: 300 MG, QOW
     Route: 058
  2. OMEPRAZOLE [Concomitant]
     Active Substance: OMEPRAZOLE
  3. PREDNISONE [Concomitant]
     Active Substance: PREDNISONE
  4. ACYCLOVIR [Concomitant]
     Active Substance: ACYCLOVIR
  5. ADDERALL [Concomitant]
     Active Substance: AMPHETAMINE ASPARTATE\AMPHETAMINE SULFATE\DEXTROAMPHETAMINE SACCHARATE\DEXTROAMPHETAMINE SULFATE
  6. ATORVASTATIN [Concomitant]
     Active Substance: ATORVASTATIN
  7. GABAPENTIN [Concomitant]
     Active Substance: GABAPENTIN
  8. HYDROXYZINE [Concomitant]
     Active Substance: HYDROXYZINE HYDROCHLORIDE
  9. IBUPROFEN [Concomitant]
     Active Substance: IBUPROFEN
  10. METHENAMINE [Concomitant]
     Active Substance: METHENAMINE
  11. MOVANTIK [Concomitant]
     Active Substance: NALOXEGOL OXALATE
  12. ONDANSETRON [Concomitant]
     Active Substance: ONDANSETRON
  13. OXYCODONE HYDROCHLORIDE [Concomitant]
     Active Substance: OXYCODONE HYDROCHLORIDE
  14. TRAZODONE HCL [Concomitant]
     Active Substance: TRAZODONE HYDROCHLORIDE
  15. TRELEGY ELLIPTA [Concomitant]
     Active Substance: FLUTICASONE FUROATE\UMECLIDINIUM BROMIDE\VILANTEROL TRIFENATATE
  16. VENTOLIN HFA [Concomitant]
     Active Substance: ALBUTEROL SULFATE

REACTIONS (7)
  - Hepatic enzyme increased [Unknown]
  - Hepatic pain [Unknown]
  - Bone pain [Unknown]
  - Decreased appetite [Unknown]
  - Weight decreased [Unknown]
  - Headache [Unknown]
  - Product use in unapproved indication [Unknown]
